FAERS Safety Report 25227928 (Version 1)
Quarter: 2025Q2

REPORT INFORMATION
  Report Type: Report from Study
  Country: CA (occurrence: CA)
  Receive Date: 20250423
  Receipt Date: 20250423
  Transmission Date: 20250717
  Serious: Yes (Hospitalization, Other)
  Sender: BIOGEN
  Company Number: CA-BIOGEN-2025BI01308063

PATIENT
  Sex: Male

DRUGS (1)
  1. TYSABRI [Suspect]
     Active Substance: NATALIZUMAB
     Indication: Multiple sclerosis
     Route: 050
     Dates: start: 20211112

REACTIONS (5)
  - Cystitis [Recovered/Resolved]
  - Seizure [Recovered/Resolved]
  - Migraine [Recovered/Resolved]
  - Toothache [Recovered/Resolved]
  - Head injury [Unknown]
